FAERS Safety Report 23892085 (Version 1)
Quarter: 2024Q2

REPORT INFORMATION
  Report Type: Spontaneous
  Country: US (occurrence: None)
  Receive Date: 20240524
  Receipt Date: 20240524
  Transmission Date: 20240716
  Serious: No
  Sender: FDA-Public Use
  Company Number: US-ROCHE-3388256

PATIENT
  Sex: Female

DRUGS (1)
  1. ACTEMRA [Suspect]
     Active Substance: TOCILIZUMAB
     Indication: Rheumatoid arthritis
     Dosage: ACTEMRA 80MG 4ML SDV?LAST DOSE TAKEN END OF JUNE(26/6/2023)
     Route: 042
     Dates: start: 20230323

REACTIONS (2)
  - Illness [Unknown]
  - Fatigue [Unknown]
